APPROVED DRUG PRODUCT: VISTIDE
Active Ingredient: CIDOFOVIR
Strength: EQ 375MG BASE/5ML (EQ 75MG BASE/ML) **Federal Register determination that product was not discontinued or withdrawn for safety or effectiveness reasons**
Dosage Form/Route: SOLUTION;INTRAVENOUS
Application: N020638 | Product #001
Applicant: GILEAD SCIENCES INC
Approved: Jun 26, 1996 | RLD: Yes | RS: No | Type: DISCN